FAERS Safety Report 17189805 (Version 1)
Quarter: 2019Q4

REPORT INFORMATION
  Report Type: Spontaneous
  Country: US (occurrence: US)
  Receive Date: 20191129
  Receipt Date: 20191129
  Transmission Date: 20200122
  Serious: No
  Sender: FDA-Public Use
  Company Number: None

PATIENT
  Age: 19 Year
  Sex: Male

DRUGS (1)
  1. JADENU [Suspect]
     Active Substance: DEFERASIROX
     Indication: HAEMOCHROMATOSIS
     Route: 048
     Dates: start: 201902

REACTIONS (5)
  - Migraine [None]
  - Nausea [None]
  - Hypoacusis [None]
  - Product dose omission [None]
  - Visual impairment [None]

NARRATIVE: CASE EVENT DATE: 20191127
